FAERS Safety Report 8496398-8 (Version None)
Quarter: 2012Q3

REPORT INFORMATION
  Report Type: 
  Country: None (occurrence: None)
  Receive Date: 20120709
  Receipt Date: 20120628
  Transmission Date: 20120928
  Serious: No
  Sender: FDA-Public Use
  Company Number: JP-B.I. PHARMACEUTICALS,INC./RIDGEFIELD-2012-BP-14675NB

PATIENT
  Sex: Female

DRUGS (5)
  1. AMLODIPINE [Concomitant]
     Indication: HYPERTENSION
     Route: 048
  2. LENDORMIN [Concomitant]
     Indication: INSOMNIA
     Route: 048
  3. DEPAS [Concomitant]
     Indication: DEPRESSION
     Route: 048
  4. MICARDIS [Suspect]
     Indication: HYPERTENSION
     Dosage: 40 MG
     Route: 048
  5. LANSOPRAZOLE [Concomitant]
     Route: 048

REACTIONS (1)
  - OLIGOHYDRAMNIOS [None]
